FAERS Safety Report 14249721 (Version 1)
Quarter: 2017Q4

REPORT INFORMATION
  Report Type: Spontaneous
  Country: US (occurrence: US)
  Receive Date: 20171204
  Receipt Date: 20171204
  Transmission Date: 20180321
  Serious: Yes (Hospitalization)
  Sender: FDA-Public Use
  Company Number: None

PATIENT
  Age: 75 Year
  Sex: Male
  Weight: 87.7 kg

DRUGS (10)
  1. CARVEDILOL. [Concomitant]
     Active Substance: CARVEDILOL
  2. ZOLPIDEM [Concomitant]
     Active Substance: ZOLPIDEM\ZOLPIDEM TARTRATE
  3. LEVOTHYROXINE. [Concomitant]
     Active Substance: LEVOTHYROXINE
  4. LISINOPRIL. [Concomitant]
     Active Substance: LISINOPRIL
  5. TAMSULOSIN [Concomitant]
     Active Substance: TAMSULOSIN
  6. APIXABAN [Concomitant]
     Active Substance: APIXABAN
  7. ATORVASTATIN [Concomitant]
     Active Substance: ATORVASTATIN
  8. DILTIAZEM. [Concomitant]
     Active Substance: DILTIAZEM
  9. CABOZANTINIB [Suspect]
     Active Substance: CABOZANTINIB
     Indication: RENAL CELL CARCINOMA
     Route: 048
     Dates: start: 20171115, end: 20171123
  10. NORCO [Concomitant]
     Active Substance: ACETAMINOPHEN\HYDROCODONE BITARTRATE

REACTIONS (6)
  - Hypertensive crisis [None]
  - Dysarthria [None]
  - Headache [None]
  - Hallucination, visual [None]
  - Aphasia [None]
  - Auditory disorder [None]

NARRATIVE: CASE EVENT DATE: 20171123
